FAERS Safety Report 24272955 (Version 1)
Quarter: 2024Q3

REPORT INFORMATION
  Report Type: Spontaneous
  Country: JP (occurrence: JP)
  Receive Date: 20240902
  Receipt Date: 20240902
  Transmission Date: 20241016
  Serious: Yes (Hospitalization, Other)
  Sender: ROCHE
  Company Number: JP-ROCHE-10000067361

PATIENT
  Age: 6 Decade
  Sex: Male

DRUGS (3)
  1. ATEZOLIZUMAB [Suspect]
     Active Substance: ATEZOLIZUMAB
     Indication: Hepatocellular carcinoma
     Route: 065
  2. BEVACIZUMAB [Suspect]
     Active Substance: BEVACIZUMAB
     Indication: Hepatocellular carcinoma
     Route: 050
  3. LENVATINIB [Concomitant]
     Active Substance: LENVATINIB

REACTIONS (2)
  - Adrenal insufficiency [Recovering/Resolving]
  - Bleeding varicose vein [Recovering/Resolving]
